FAERS Safety Report 17954628 (Version 6)
Quarter: 2022Q1

REPORT INFORMATION
  Report Type: Spontaneous
  Country: US (occurrence: US)
  Receive Date: 20200629
  Receipt Date: 20220131
  Transmission Date: 20220423
  Serious: Yes (Hospitalization, Other)
  Sender: FDA-Public Use
  Company Number: US-GILEAD-2020-0476827

PATIENT
  Age: 35 Year
  Sex: Male
  Weight: 97.052 kg

DRUGS (60)
  1. VIREAD [Suspect]
     Active Substance: TENOFOVIR DISOPROXIL FUMARATE
     Indication: HIV infection
     Dosage: UNK
     Route: 065
     Dates: start: 2001, end: 20031029
  2. TRUVADA [Suspect]
     Active Substance: EMTRICITABINE\TENOFOVIR DISOPROXIL FUMARATE
     Indication: HIV infection
     Dosage: UNK
     Route: 048
     Dates: start: 2005, end: 2018
  3. TRUVADA [Suspect]
     Active Substance: EMTRICITABINE\TENOFOVIR DISOPROXIL FUMARATE
     Dosage: UNK
     Route: 048
     Dates: start: 2005, end: 20150403
  4. TRUVADA [Suspect]
     Active Substance: EMTRICITABINE\TENOFOVIR DISOPROXIL FUMARATE
     Dosage: UNK
     Route: 065
     Dates: start: 20100728, end: 20141016
  5. EPIVIR [Concomitant]
     Active Substance: LAMIVUDINE
  6. INVIRASE [Concomitant]
     Active Substance: SAQUINAVIR MESYLATE
  7. JULUCA [Concomitant]
     Active Substance: DOLUTEGRAVIR SODIUM\RILPIVIRINE HYDROCHLORIDE
  8. NORVIR [Concomitant]
     Active Substance: RITONAVIR
  9. KALETRA [Concomitant]
     Active Substance: LOPINAVIR\RITONAVIR
  10. ISENTRESS [Concomitant]
     Active Substance: RALTEGRAVIR POTASSIUM
  11. PREZISTA [Concomitant]
     Active Substance: DARUNAVIR ETHANOLATE
  12. TRIUMEQ [Concomitant]
     Active Substance: ABACAVIR SULFATE\DOLUTEGRAVIR SODIUM\LAMIVUDINE
  13. OXYCODONE [Concomitant]
     Active Substance: OXYCODONE
  14. VALIUM [Concomitant]
     Active Substance: DIAZEPAM
  15. SERTRALINE [Concomitant]
     Active Substance: SERTRALINE HYDROCHLORIDE
  16. ZOLOFT [Concomitant]
     Active Substance: SERTRALINE HYDROCHLORIDE
  17. AVELOX [Concomitant]
     Active Substance: MOXIFLOXACIN HYDROCHLORIDE
  18. NEURONTIN [Concomitant]
     Active Substance: GABAPENTIN
  19. LYRICA [Concomitant]
     Active Substance: PREGABALIN
  20. ACETAMINOPHEN\OXYCODONE HYDROCHLORIDE\OXYCODONE TEREPHTHALATE [Concomitant]
     Active Substance: ACETAMINOPHEN\OXYCODONE HYDROCHLORIDE\OXYCODONE TEREPHTHALATE
  21. OPANA [Concomitant]
     Active Substance: OXYMORPHONE HYDROCHLORIDE
  22. ALBUTEROL SULFATE [Concomitant]
     Active Substance: ALBUTEROL SULFATE
  23. AMOXICILLIN [Concomitant]
     Active Substance: AMOXICILLIN
  24. LASIX [Concomitant]
     Active Substance: FUROSEMIDE
  25. OMEPRAZOLE [Concomitant]
     Active Substance: OMEPRAZOLE
  26. PREDNISOLONE [Concomitant]
     Active Substance: PREDNISOLONE
  27. PREDNISONE [Concomitant]
     Active Substance: PREDNISONE
  28. WARFARIN [Concomitant]
     Active Substance: WARFARIN
  29. ENDOCET [Concomitant]
     Active Substance: ACETAMINOPHEN\OXYCODONE HYDROCHLORIDE
  30. AMLODIPINE [Concomitant]
     Active Substance: AMLODIPINE BESYLATE
  31. BISOPROLOL [Concomitant]
     Active Substance: BISOPROLOL
  32. PRINIVIL [Concomitant]
     Active Substance: LISINOPRIL
  33. SYMBICORT [Concomitant]
     Active Substance: BUDESONIDE\FORMOTEROL FUMARATE DIHYDRATE
  34. HYDROCORTISONE [Concomitant]
     Active Substance: HYDROCORTISONE
  35. INDOMETHACIN SODIUM [Concomitant]
     Active Substance: INDOMETHACIN SODIUM
  36. MELOXICAM [Concomitant]
     Active Substance: MELOXICAM
  37. TOPROL XL [Concomitant]
     Active Substance: METOPROLOL SUCCINATE
  38. CYCLOBENZAPRINE [Concomitant]
     Active Substance: CYCLOBENZAPRINE
  39. ZOFRAN [Concomitant]
     Active Substance: ONDANSETRON HYDROCHLORIDE
  40. CEPHALEXIN [Concomitant]
     Active Substance: CEPHALEXIN
  41. SULFAMETHOXAZOLE [Concomitant]
     Active Substance: SULFAMETHOXAZOLE
  42. FENTANYL [Concomitant]
     Active Substance: FENTANYL
  43. LEVITRA [Concomitant]
     Active Substance: VARDENAFIL HYDROCHLORIDE
  44. SILDENAFIL [Concomitant]
     Active Substance: SILDENAFIL
  45. VALACYCLOVIR [Concomitant]
     Active Substance: VALACYCLOVIR HYDROCHLORIDE
  46. MEGACE [Concomitant]
     Active Substance: MEGESTROL ACETATE
  47. HYDROMORPHONE [Concomitant]
     Active Substance: HYDROMORPHONE
  48. MUPIROCIN [Concomitant]
     Active Substance: MUPIROCIN
  49. POLYETHYLENE GLYCOL 3350 [Concomitant]
     Active Substance: POLYETHYLENE GLYCOL 3350
  50. PROMETHAZINE [Concomitant]
     Active Substance: PROMETHAZINE HYDROCHLORIDE
  51. COLCRYS [Concomitant]
     Active Substance: COLCHICINE
  52. GOODY [Concomitant]
  53. DOXYCYCLINE [Concomitant]
     Active Substance: DOXYCYCLINE
  54. ERYTHROMYCIN [Concomitant]
     Active Substance: ERYTHROMYCIN
  55. PROAIR HFA [Concomitant]
     Active Substance: ALBUTEROL SULFATE
  56. METRONIDAZOLE [Concomitant]
     Active Substance: METRONIDAZOLE
  57. SUMATRIPTAN [Concomitant]
     Active Substance: SUMATRIPTAN
  58. AZITHROMYCIN [Concomitant]
     Active Substance: AZITHROMYCIN
  59. LEVOFLOXACIN [Concomitant]
     Active Substance: LEVOFLOXACIN
  60. KETOROLAC [Concomitant]
     Active Substance: KETOROLAC TROMETHAMINE

REACTIONS (22)
  - End stage renal disease [Not Recovered/Not Resolved]
  - Multiple fractures [Unknown]
  - Osteoporotic fracture [Unknown]
  - Hip arthroplasty [Unknown]
  - Hip arthroplasty [Unknown]
  - Knee arthroplasty [Unknown]
  - Wrist fracture [Recovered/Resolved]
  - Chronic kidney disease [Not Recovered/Not Resolved]
  - Osteonecrosis [Not Recovered/Not Resolved]
  - Osteonecrosis [Not Recovered/Not Resolved]
  - Osteonecrosis [Not Recovered/Not Resolved]
  - Renal failure [Not Recovered/Not Resolved]
  - Acute kidney injury [Recovered/Resolved]
  - Rib fracture [Not Recovered/Not Resolved]
  - Tooth loss [Not Recovered/Not Resolved]
  - Gait disturbance [Not Recovered/Not Resolved]
  - Mobility decreased [Not Recovered/Not Resolved]
  - Emotional distress [Unknown]
  - Bone loss [Unknown]
  - Osteopenia [Not Recovered/Not Resolved]
  - Bone density decreased [Unknown]
  - Pain [Unknown]

NARRATIVE: CASE EVENT DATE: 20030212
